FAERS Safety Report 11215176 (Version 2)
Quarter: 2015Q3

REPORT INFORMATION
  Report Type: Spontaneous
  Country: AU (occurrence: AU)
  Receive Date: 20150624
  Receipt Date: 20150728
  Transmission Date: 20151125
  Serious: Yes (Hospitalization)
  Sender: FDA-Public Use
  Company Number: AU-NOVOPROD-453170

PATIENT
  Sex: Male

DRUGS (2)
  1. NOVORAPID [Suspect]
     Active Substance: INSULIN ASPART
     Indication: PRODUCT USED FOR UNKNOWN INDICATION
     Dosage: 7 UNITS THREE TIMES A DAY. THIS DOSAGE CAN CHANGE SLIGHTLY.
     Route: 058
  2. LEVEMIR PENFILL [Suspect]
     Active Substance: INSULIN DETEMIR
     Indication: PRODUCT USED FOR UNKNOWN INDICATION
     Dosage: 7 UNITS IN THE MORNING, 10 UNITS AT NIGHT
     Route: 058

REACTIONS (2)
  - Device malfunction [Unknown]
  - Coma [Unknown]
